FAERS Safety Report 24638498 (Version 1)
Quarter: 2024Q4

REPORT INFORMATION
  Report Type: Spontaneous
  Country: CN (occurrence: CN)
  Receive Date: 20241119
  Receipt Date: 20241119
  Transmission Date: 20250114
  Serious: Yes (Life-Threatening, Hospitalization)
  Sender: DAIICHI
  Company Number: CN-DSJP-DS-2024-106941-CN

PATIENT
  Sex: Male

DRUGS (3)
  1. EDOXABAN [Suspect]
     Active Substance: EDOXABAN
     Indication: Coagulopathy
     Dosage: 2 DOSAGE FORM, QD (SPECIFICATION: 30 MG)
     Route: 065
  2. EDOXABAN [Suspect]
     Active Substance: EDOXABAN
     Dosage: 4 DOSAGE FORM, QD (SPECIFICATION: 15 MG)
     Route: 065
  3. EDOXABAN [Suspect]
     Active Substance: EDOXABAN
     Dosage: 1 DOSAGE FORM, QD (SPECIFICATION: 60 MG)
     Route: 065

REACTIONS (6)
  - Syncope [Unknown]
  - Cerebral thrombosis [Unknown]
  - Cerebral infarction [Unknown]
  - Hemiplegia [Unknown]
  - Disturbance in attention [Unknown]
  - Fall [Unknown]
